FAERS Safety Report 18159700 (Version 1)
Quarter: 2020Q3

REPORT INFORMATION
  Report Type: Spontaneous
  Country: DK (occurrence: DK)
  Receive Date: 20200818
  Receipt Date: 20200818
  Transmission Date: 20201103
  Serious: Yes (Other)
  Sender: FDA-Public Use
  Company Number: DK-SAMSUNG BIOEPIS-SB-2020-25428

PATIENT
  Age: 82 Year
  Sex: Female

DRUGS (8)
  1. PACLITAXEL. [Suspect]
     Active Substance: PACLITAXEL
     Indication: INVASIVE DUCTAL BREAST CARCINOMA
     Dosage: DOSAGE: 108?138MG 7 TIMES. STRENGTH: 6MG / ML
     Route: 042
     Dates: start: 20180831, end: 20181025
  2. SENDOXAN [Suspect]
     Active Substance: CYCLOPHOSPHAMIDE
     Indication: INVASIVE DUCTAL BREAST CARCINOMA
     Dosage: DOSAGE: 1100 MG 3 TIMES. STRENGTH: 200 MG
     Route: 042
     Dates: start: 20180629, end: 20180810
  3. HERCEPTIN [Suspect]
     Active Substance: TRASTUZUMAB
     Indication: INVASIVE DUCTAL BREAST CARCINOMA
     Dosage: DOSE: GIVEN TWICE?STRENGTH: 600MG / 5ML
     Route: 058
     Dates: start: 20180831, end: 20180921
  4. ZOLEDRONIC ACID [Suspect]
     Active Substance: ZOLEDRONIC ACID
     Indication: INVASIVE DUCTAL BREAST CARCINOMA
     Route: 042
     Dates: start: 201811
  5. TRASTUZUMAB. [Suspect]
     Active Substance: TRASTUZUMAB
     Indication: INVASIVE DUCTAL BREAST CARCINOMA
     Dosage: DOSE: 420 MG EACH TIME. STRENGTH: 420 MG
     Route: 042
     Dates: start: 20181011, end: 20190806
  6. EPIRUBICIN [Suspect]
     Active Substance: EPIRUBICIN
     Indication: INVASIVE DUCTAL BREAST CARCINOMA
     Dosage: DOSAGE: 160 MG 3 TIMES. STRENGTH: 2 MG / ML
     Route: 042
     Dates: start: 20180629, end: 20180810
  7. PERTUZUMAB. [Suspect]
     Active Substance: PERTUZUMAB
     Indication: INVASIVE DUCTAL BREAST CARCINOMA
     Dosage: DOSAGE: 840 MG AND REDUCED TO 420 MG STRENGTH: 420 MG
     Route: 042
     Dates: start: 20180831, end: 20181011
  8. PERTUZUMAB. [Suspect]
     Active Substance: PERTUZUMAB
     Dosage: DOSAGE: 840 MG AND REDUCED TO 420 MG STRENGTH: 420 MG
     Route: 042

REACTIONS (2)
  - Tooth extraction [Recovered/Resolved]
  - Osteitis [Recovered/Resolved]

NARRATIVE: CASE EVENT DATE: 20190327
